FAERS Safety Report 17064398 (Version 1)
Quarter: 2019Q4

REPORT INFORMATION
  Report Type: Spontaneous
  Country: GB (occurrence: GB)
  Receive Date: 20191122
  Receipt Date: 20191122
  Transmission Date: 20200122
  Serious: Yes (Other)
  Sender: FDA-Public Use
  Company Number: GB-PFIZER INC-2019499940

PATIENT
  Age: 37 Year
  Sex: Male
  Weight: 121 kg

DRUGS (7)
  1. DESLORATADINE. [Concomitant]
     Active Substance: DESLORATADINE
     Dosage: TAKE ONE DAILY REGULARLY, INCREASING TO FOUR
     Dates: start: 20171005
  2. JEXT [Concomitant]
     Dosage: UNK (USE AS DIRECTED)
     Dates: start: 20181011, end: 20181019
  3. IBUPROFEN. [Suspect]
     Active Substance: IBUPROFEN
     Dosage: 400 MG, UNK
     Dates: start: 20181129
  4. CITALOPRAM [Concomitant]
     Active Substance: CITALOPRAM HYDROBROMIDE
     Indication: DEPRESSED MOOD
     Dosage: 1 DF, 1X/DAY (EACH MORNING)
     Dates: start: 20180502
  5. DICLOFENAC DIETHYLAMINE [Concomitant]
     Active Substance: DICLOFENAC DIETHYLAMINE
     Dosage: 2 DF, 1X/DAY (APPLY)
     Dates: start: 20180921, end: 20181019
  6. PROPRANOLOL [Concomitant]
     Active Substance: PROPRANOLOL HYDROCHLORIDE
     Dosage: 1 DF, 1X/DAY
     Dates: start: 20180312
  7. DYMISTA [Concomitant]
     Active Substance: AZELASTINE HYDROCHLORIDE\FLUTICASONE PROPIONATE
     Dosage: 1 DF, UNK (PUFF, ONCE OR TWICE DAILY BOTH NOSTRILS)
     Route: 045
     Dates: start: 20171005

REACTIONS (1)
  - Gastrointestinal haemorrhage [Not Recovered/Not Resolved]

NARRATIVE: CASE EVENT DATE: 20181129
